FAERS Safety Report 11039451 (Version 2)
Quarter: 2015Q2

REPORT INFORMATION
  Report Type: Spontaneous
  Country: US (occurrence: US)
  Receive Date: 20150416
  Receipt Date: 20150525
  Transmission Date: 20150821
  Serious: No
  Sender: FDA-Public Use
  Company Number: US-JNJFOC-20130814332

PATIENT
  Sex: Female
  Weight: 56.25 kg

DRUGS (7)
  1. NATURE-THROID [Concomitant]
     Active Substance: THYROID, PORCINE
     Indication: THYROID THERAPY
     Dosage: 1/4GRAIN/TABLET/1/4GRAIN/DAILY/ORAL
     Route: 048
  2. ASPIRIN. [Concomitant]
     Active Substance: ASPIRIN
     Indication: CARDIOVASCULAR EVENT PROPHYLAXIS
     Dosage: BEGAN YEARS AGO
     Route: 048
  3. ATENOLOL. [Concomitant]
     Active Substance: ATENOLOL
     Indication: ATRIAL FIBRILLATION
     Dosage: BEGAN YEARS AGO
     Route: 048
  4. XARELTO [Suspect]
     Active Substance: RIVAROXABAN
     Indication: ATRIAL FIBRILLATION
     Route: 048
     Dates: start: 2013
  5. DIGOXIN. [Concomitant]
     Active Substance: DIGOXIN
     Indication: CARDIOVASCULAR EVENT PROPHYLAXIS
     Dosage: BEGAN YEARS AGO
     Route: 048
  6. CRESTOR [Concomitant]
     Active Substance: ROSUVASTATIN CALCIUM
     Indication: BLOOD CHOLESTEROL
     Dosage: BEGAN 2 YEARS AGO
     Route: 048
  7. MESALAMINE. [Concomitant]
     Active Substance: MESALAMINE
     Route: 048
     Dates: start: 201307

REACTIONS (3)
  - Pain in extremity [Not Recovered/Not Resolved]
  - Gait disturbance [Not Recovered/Not Resolved]
  - Paraesthesia [Not Recovered/Not Resolved]

NARRATIVE: CASE EVENT DATE: 2013
